FAERS Safety Report 4683171-1 (Version None)
Quarter: 2005Q2

REPORT INFORMATION
  Report Type: 
  Country: None (occurrence: None)
  Receive Date: 20050602
  Receipt Date: 20050505
  Transmission Date: 20051028
  Serious: No
  Sender: FDA-Public Use
  Company Number: USA050392690

PATIENT
  Age: 58 Year
  Sex: Female

DRUGS (3)
  1. CYMBALTA [Suspect]
     Indication: DEPRESSION
     Dosage: 30 MG DAY
     Dates: start: 20050107
  2. VITAMINS NOS [Concomitant]
  3. CORTISONE [Concomitant]

REACTIONS (3)
  - BLOOD CALCIUM INCREASED [None]
  - HYPOAESTHESIA [None]
  - WHITE BLOOD CELL COUNT INCREASED [None]
